FAERS Safety Report 15020017 (Version 1)
Quarter: 2018Q2

REPORT INFORMATION
  Report Type: Spontaneous
  Country: US (occurrence: US)
  Receive Date: 20180618
  Receipt Date: 20180618
  Transmission Date: 20180711
  Serious: No
  Sender: FDA-Public Use
  Company Number: US-BAUSCH-BL-2017-031113

PATIENT
  Sex: Male

DRUGS (1)
  1. SOLODYN [Suspect]
     Active Substance: MINOCYCLINE HYDROCHLORIDE
     Indication: PRODUCT USED FOR UNKNOWN INDICATION
     Dosage: STARTED 3 WEEKS AGO
     Route: 048
     Dates: start: 201710, end: 20171105

REACTIONS (5)
  - Headache [Unknown]
  - Peripheral swelling [Unknown]
  - Joint swelling [Unknown]
  - Rash generalised [Unknown]
  - Dizziness [Unknown]

NARRATIVE: CASE EVENT DATE: 2017
